FAERS Safety Report 5858781-6 (Version None)
Quarter: 2008Q3

REPORT INFORMATION
  Report Type: 
  Country: None (occurrence: None)
  Receive Date: 20080825
  Receipt Date: 20080814
  Transmission Date: 20090109
  Serious: Yes (Hospitalization)
  Sender: FDA-Public Use
  Company Number: 2008AP002022

PATIENT
  Age: 54 Year
  Sex: Female

DRUGS (5)
  1. LITHIUM CARBONATE CAP [Suspect]
     Indication: BIPOLAR DISORDER
     Dosage: 300 MG, BID,
  2. CARBAMAZEPINE [Concomitant]
  3. AMLODIPINE [Concomitant]
  4. ATORVASTATIN CALCIUM [Concomitant]
  5. CLONAZEPAM [Concomitant]

REACTIONS (23)
  - ATRIOVENTRICULAR BLOCK [None]
  - AV DISSOCIATION [None]
  - BLOOD SODIUM DECREASED [None]
  - CONFUSIONAL STATE [None]
  - DIALYSIS [None]
  - DYSSTASIA [None]
  - FATIGUE [None]
  - HYPERPARATHYROIDISM [None]
  - HYPOTENSION [None]
  - INCOHERENT [None]
  - LETHARGY [None]
  - MENTAL STATUS CHANGES [None]
  - MUCOSAL DRYNESS [None]
  - NEPHROGENIC DIABETES INSIPIDUS [None]
  - OBESITY [None]
  - OEDEMA PERIPHERAL [None]
  - RENAL FAILURE ACUTE [None]
  - RESPIRATORY FAILURE [None]
  - SINUS BRADYCARDIA [None]
  - THERAPEUTIC AGENT TOXICITY [None]
  - THYROID CANCER [None]
  - URINARY INCONTINENCE [None]
  - WHITE BLOOD CELL COUNT INCREASED [None]
